FAERS Safety Report 9808274 (Version 2)
Quarter: 2014Q1

REPORT INFORMATION
  Report Type: Spontaneous
  Country: US (occurrence: US)
  Receive Date: 20140110
  Receipt Date: 20140117
  Transmission Date: 20141002
  Serious: Yes (Other)
  Sender: FDA-Public Use
  Company Number: US-BAYER-2014-004301

PATIENT
  Sex: Male

DRUGS (2)
  1. STAXYN (FDT/ODT) [Suspect]
     Route: 048
  2. STAXYN (FDT/ODT) [Suspect]
     Route: 048

REACTIONS (9)
  - Labyrinthitis [None]
  - Loss of consciousness [None]
  - Hyperhidrosis [None]
  - Vomiting [None]
  - Musculoskeletal stiffness [None]
  - Vertigo [None]
  - Dizziness [None]
  - Balance disorder [None]
  - Ocular hyperaemia [None]
